FAERS Safety Report 24936442 (Version 3)
Quarter: 2025Q3

REPORT INFORMATION
  Report Type: Other
  Country: US (occurrence: US)
  Receive Date: 20250206
  Receipt Date: 20250916
  Transmission Date: 20251021
  Serious: No
  Sender: TRAVERE THERAPEUTICS
  Company Number: US-TRAVERE-2025TVT00113

PATIENT
  Age: 77 Year
  Sex: Female

DRUGS (4)
  1. FILSPARI [Suspect]
     Active Substance: SPARSENTAN
     Indication: Chronic kidney disease
     Route: 048
  2. FILSPARI [Suspect]
     Active Substance: SPARSENTAN
     Indication: Proteinuria
     Route: 048
     Dates: start: 20250128
  3. GABAPENTIN [Suspect]
     Active Substance: GABAPENTIN
     Indication: Restless legs syndrome
  4. GABAPENTIN [Suspect]
     Active Substance: GABAPENTIN

REACTIONS (10)
  - Decreased appetite [None]
  - Condition aggravated [None]
  - Mood swings [None]
  - Product use in unapproved indication [Unknown]
  - Restless legs syndrome [Unknown]
  - Insomnia [Unknown]
  - Cough [Unknown]
  - Headache [Unknown]
  - Dyspnoea [Unknown]
  - Fatigue [Unknown]

NARRATIVE: CASE EVENT DATE: 20250101
